FAERS Safety Report 11740673 (Version 2)
Quarter: 2015Q4

REPORT INFORMATION
  Report Type: Spontaneous
  Country: US (occurrence: US)
  Receive Date: 20151110
  Receipt Date: 20151120
  Transmission Date: 20160304
  Serious: No
  Sender: FDA-Public Use
  Company Number: US-ELI_LILLY_AND_COMPANY-US201209000824

PATIENT
  Age: 56 Year
  Sex: Female

DRUGS (9)
  1. ALPRAZOLAM. [Concomitant]
     Active Substance: ALPRAZOLAM
     Indication: MUSCULOSKELETAL DISCOMFORT
     Dosage: UNK
  2. PROZAC [Concomitant]
     Active Substance: FLUOXETINE HYDROCHLORIDE
  3. FORTEO [Suspect]
     Active Substance: TERIPARATIDE
     Dosage: 20 UG, QD
     Route: 065
  4. TIZANIDINE. [Concomitant]
     Active Substance: TIZANIDINE
  5. OXYCODONE [Concomitant]
     Active Substance: OXYCODONE
  6. XOROX                              /00587301/ [Concomitant]
  7. FORTEO [Suspect]
     Active Substance: TERIPARATIDE
     Indication: OSTEOPOROSIS
     Dosage: 20 UG, QD
     Dates: start: 20120825
  8. ROBAXIN [Concomitant]
     Active Substance: METHOCARBAMOL
  9. EXCEDRIN [Concomitant]
     Active Substance: ACETAMINOPHEN\ASPIRIN\CAFFEINE
     Indication: HEADACHE

REACTIONS (13)
  - Extrasystoles [Recovered/Resolved]
  - Anxiety [Recovered/Resolved]
  - Nephrolithiasis [Unknown]
  - Back pain [Unknown]
  - Feeling cold [Unknown]
  - Pain [Unknown]
  - Arthralgia [Unknown]
  - Gait disturbance [Unknown]
  - Dry mouth [Unknown]
  - Weight decreased [Unknown]
  - Headache [Unknown]
  - Toothache [Unknown]
  - Gingival swelling [Unknown]

NARRATIVE: CASE EVENT DATE: 20120830
